FAERS Safety Report 16755468 (Version 4)
Quarter: 2019Q4

REPORT INFORMATION
  Report Type: Report from Study
  Country: None (occurrence: US)
  Receive Date: 20190829
  Receipt Date: 20191221
  Transmission Date: 20200122
  Serious: Yes (Other)
  Sender: FDA-Public Use
  Company Number: US-ABBVIE-19K-163-2800731-00

PATIENT
  Age: 63 Year
  Sex: Female
  Weight: 134.38 kg

DRUGS (7)
  1. ALLEGRA [Concomitant]
     Active Substance: FEXOFENADINE HYDROCHLORIDE
     Indication: ALLERGY TO PLANTS
  2. ALLEGRA [Concomitant]
     Active Substance: FEXOFENADINE HYDROCHLORIDE
     Indication: SEASONAL ALLERGY
  3. SERTRALINE HCL [Concomitant]
     Active Substance: SERTRALINE HYDROCHLORIDE
     Indication: ANXIETY
  4. HUMIRA [Suspect]
     Active Substance: ADALIMUMAB
     Indication: RHEUMATOID ARTHRITIS
     Route: 058
     Dates: start: 20190727
  5. HUMIRA [Suspect]
     Active Substance: ADALIMUMAB
     Indication: ANKYLOSING SPONDYLITIS
     Route: 058
     Dates: start: 20170530, end: 20190504
  6. ALEVE [Concomitant]
     Active Substance: NAPROXEN SODIUM
     Indication: PRODUCT USED FOR UNKNOWN INDICATION
  7. ZOLOFT [Concomitant]
     Active Substance: SERTRALINE HYDROCHLORIDE
     Indication: PRODUCT USED FOR UNKNOWN INDICATION

REACTIONS (20)
  - Skin cancer [Recovering/Resolving]
  - Chemical burn [Recovering/Resolving]
  - Postoperative wound infection [Recovered/Resolved]
  - Bloody discharge [Recovering/Resolving]
  - Pruritus [Recovering/Resolving]
  - Scab [Recovering/Resolving]
  - Mass [Not Recovered/Not Resolved]
  - Nausea [Unknown]
  - Postoperative wound infection [Recovered/Resolved]
  - Photodermatosis [Unknown]
  - Basal cell carcinoma [Recovered/Resolved]
  - Basal cell carcinoma [Recovered/Resolved]
  - Skin cancer [Not Recovered/Not Resolved]
  - Limb mass [Not Recovered/Not Resolved]
  - Actinic keratosis [Recovering/Resolving]
  - Pain of skin [Recovering/Resolving]
  - Wound dehiscence [Recovered/Resolved]
  - Erythema [Recovering/Resolving]
  - Wound dehiscence [Recovered/Resolved]
  - Impaired healing [Unknown]

NARRATIVE: CASE EVENT DATE: 2019
